FAERS Safety Report 14390774 (Version 1)
Quarter: 2018Q1

REPORT INFORMATION
  Report Type: Other
  Country: RO (occurrence: RO)
  Receive Date: 20180116
  Receipt Date: 20180116
  Transmission Date: 20180509
  Serious: Yes (Death)
  Sender: FDA-Public Use
  Company Number: RO-ORCHID HEALTHCARE-2040079

PATIENT
  Age: 33 Year
  Sex: Male

DRUGS (4)
  1. VENLAFAXINE HYDROCHLORIDE. [Suspect]
     Active Substance: VENLAFAXINE HYDROCHLORIDE
     Route: 065
  2. PHENOBARBITAL. [Concomitant]
     Active Substance: PHENOBARBITAL
     Route: 065
  3. QUETIAPINE. [Concomitant]
     Active Substance: QUETIAPINE
     Route: 065
  4. CARBOXY- TETRAHYDROCANNABINOL [Concomitant]
     Route: 065

REACTIONS (5)
  - Renal infarct [Fatal]
  - Toxicity to various agents [Fatal]
  - Death [Fatal]
  - Myocardial infarction [Fatal]
  - Splenic necrosis [Fatal]
